FAERS Safety Report 7156400-2 (Version None)
Quarter: 2010Q4

REPORT INFORMATION
  Report Type: 
  Country: None (occurrence: None)
  Receive Date: 20101214
  Receipt Date: 20101202
  Transmission Date: 20110411
  Serious: Yes (Other)
  Sender: FDA-Public Use
  Company Number: US-ROCHE-724532

PATIENT
  Sex: Male
  Weight: 72.6 kg

DRUGS (3)
  1. ACCUTANE [Suspect]
     Indication: SKIN ULCER
     Route: 065
     Dates: start: 19961028, end: 19970601
  2. ACCUTANE [Suspect]
     Route: 065
     Dates: start: 19990101, end: 19991101
  3. PROZAC [Concomitant]

REACTIONS (9)
  - ANAEMIA [None]
  - COLITIS ULCERATIVE [None]
  - DEPRESSION [None]
  - GASTROINTESTINAL INJURY [None]
  - INFLAMMATORY BOWEL DISEASE [None]
  - INSOMNIA [None]
  - LIP DRY [None]
  - SUICIDAL IDEATION [None]
  - XEROSIS [None]
